FAERS Safety Report 8402093 (Version 3)
Quarter: 2012Q4

REPORT INFORMATION
  Report Type: 
  Country: JP (occurrence: JP)
  Receive Date: 20120213
  Receipt Date: 20121008
  Transmission Date: 20130627
  Serious: Yes (Death, Life-Threatening, Other)
  Sender: FDA-Public Use
  Company Number: JP-JNJFOC-20120205366

PATIENT
  Age: 64 Year
  Sex: Female
  Weight: 35 kg

DRUGS (27)
  1. DUROTEP MT [Suspect]
     Indication: LUMBAR VERTEBRAL FRACTURE
     Route: 062
     Dates: start: 20120105
  2. DUROTEP MT [Suspect]
     Indication: LUMBAR VERTEBRAL FRACTURE
     Route: 062
     Dates: start: 20110118, end: 20120104
  3. DUROTEP MT [Suspect]
     Indication: LUMBAR VERTEBRAL FRACTURE
     Route: 062
     Dates: start: 20100921
  4. DUROTEP MT [Suspect]
     Indication: LUMBAR VERTEBRAL FRACTURE
     Route: 062
     Dates: start: 20100927, end: 20101011
  5. DUROTEP MT [Suspect]
     Indication: LUMBAR VERTEBRAL FRACTURE
     Route: 062
     Dates: start: 20101012, end: 20110117
  6. DUROTEP MT [Suspect]
     Indication: TRIGEMINAL NEURALGIA
     Route: 062
     Dates: start: 20120105
  7. DUROTEP MT [Suspect]
     Indication: TRIGEMINAL NEURALGIA
     Route: 062
     Dates: start: 20110118, end: 20120104
  8. DUROTEP MT [Suspect]
     Indication: TRIGEMINAL NEURALGIA
     Route: 062
     Dates: start: 20101012, end: 20110117
  9. DUROTEP MT [Suspect]
     Indication: TRIGEMINAL NEURALGIA
     Route: 062
     Dates: start: 20100927, end: 20101011
  10. DUROTEP MT [Suspect]
     Indication: TRIGEMINAL NEURALGIA
     Route: 062
     Dates: start: 20100921
  11. DUROTEP MT [Suspect]
     Indication: PAIN
     Route: 062
     Dates: start: 20120105
  12. DUROTEP MT [Suspect]
     Indication: PAIN
     Route: 062
     Dates: start: 20110118, end: 20120104
  13. DUROTEP MT [Suspect]
     Indication: PAIN
     Route: 062
     Dates: start: 20100921
  14. DUROTEP MT [Suspect]
     Indication: PAIN
     Route: 062
     Dates: start: 20100927, end: 20101011
  15. DUROTEP MT [Suspect]
     Indication: PAIN
     Route: 062
     Dates: start: 20101012, end: 20110117
  16. PREDONINE [Concomitant]
     Indication: SJOGREN^S SYNDROME
     Route: 048
  17. PREDONINE [Concomitant]
     Indication: POLYMYOSITIS
     Route: 048
  18. LYRICA [Concomitant]
     Indication: LUMBAR VERTEBRAL FRACTURE
     Route: 048
     Dates: start: 20110118, end: 20110404
  19. LYRICA [Concomitant]
     Indication: TRIGEMINAL NEURALGIA
     Route: 048
     Dates: start: 20110118, end: 20110404
  20. NAUZELIN [Concomitant]
     Indication: LUMBAR VERTEBRAL FRACTURE
     Route: 048
     Dates: start: 20100927, end: 20101220
  21. NAUZELIN [Concomitant]
     Indication: TRIGEMINAL NEURALGIA
     Route: 048
     Dates: start: 20100927, end: 20101220
  22. MAGNESIUM OXIDE [Concomitant]
     Indication: LUMBAR VERTEBRAL FRACTURE
     Route: 048
     Dates: start: 20100927, end: 20101108
  23. MAGNESIUM OXIDE [Concomitant]
     Indication: TRIGEMINAL NEURALGIA
     Route: 048
     Dates: start: 20100927, end: 20101108
  24. MOHRUS [Concomitant]
     Indication: LUMBAR VERTEBRAL FRACTURE
     Route: 062
     Dates: start: 20100927, end: 20101220
  25. MOHRUS [Concomitant]
     Indication: TRIGEMINAL NEURALGIA
     Route: 062
     Dates: start: 20100927, end: 20101220
  26. LOXONIN [Concomitant]
     Indication: LUMBAR VERTEBRAL FRACTURE
     Route: 048
     Dates: start: 20111108, end: 20120104
  27. LOXONIN [Concomitant]
     Indication: TRIGEMINAL NEURALGIA
     Route: 048
     Dates: start: 20111108, end: 20120104

REACTIONS (2)
  - Loss of consciousness [Fatal]
  - Interstitial lung disease [Fatal]
